FAERS Safety Report 12525293 (Version 2)
Quarter: 2016Q3

REPORT INFORMATION
  Report Type: Spontaneous
  Country: US (occurrence: US)
  Receive Date: 20160704
  Receipt Date: 20160822
  Transmission Date: 20161109
  Serious: Yes (Other)
  Sender: FDA-Public Use
  Company Number: US-JNJFOC-20160626357

PATIENT
  Sex: Male
  Weight: 95.26 kg

DRUGS (4)
  1. RISPERDAL [Suspect]
     Active Substance: RISPERIDONE
     Indication: BIPOLAR DISORDER
     Route: 048
     Dates: start: 2014, end: 201605
  2. ATIVAN [Concomitant]
     Active Substance: LORAZEPAM
     Route: 065
  3. RISPERDAL [Suspect]
     Active Substance: RISPERIDONE
     Indication: SCHIZOPHRENIA
     Route: 048
     Dates: start: 2014, end: 201605
  4. ZONEGRAN [Concomitant]
     Active Substance: ZONISAMIDE
     Indication: EPILEPSY
     Route: 065

REACTIONS (12)
  - Penile size reduced [Recovered/Resolved]
  - Drooling [Recovering/Resolving]
  - Anger [Not Recovered/Not Resolved]
  - Suicidal ideation [Recovering/Resolving]
  - Homosexuality [Recovering/Resolving]
  - Dysphemia [Recovering/Resolving]
  - Feeling abnormal [Recovered/Resolved]
  - Asthenia [Recovered/Resolved]
  - Post-traumatic stress disorder [Not Recovered/Not Resolved]
  - Ejaculation disorder [Recovered/Resolved]
  - Activities of daily living impaired [Recovering/Resolving]
  - Rubber sensitivity [Not Recovered/Not Resolved]

NARRATIVE: CASE EVENT DATE: 2016
